FAERS Safety Report 9886159 (Version 1)
Quarter: 2014Q1

REPORT INFORMATION
  Report Type: Spontaneous
  Country: US (occurrence: US)
  Receive Date: 20140210
  Receipt Date: 20140210
  Transmission Date: 20141002
  Serious: Yes (Congenital Anomaly, Other)
  Sender: FDA-Public Use
  Company Number: US-TEVA-461840USA

PATIENT
  Age: 0 Day
  Sex: Male

DRUGS (8)
  1. COPAXONE [Suspect]
     Route: 065
  2. VITAMIN D [Concomitant]
     Route: 065
  3. PRENATAL VITAMINS [Concomitant]
     Route: 065
  4. LEVOTHYROXINE [Concomitant]
     Indication: HYPOTHYROIDISM
     Route: 065
  5. REBIF [Concomitant]
     Route: 065
  6. CYMBALTA [Concomitant]
     Route: 065
  7. VALIUM [Concomitant]
     Route: 065
  8. VERAPAMIL [Concomitant]
     Route: 065

REACTIONS (1)
  - Pyloric stenosis [Recovering/Resolving]
